FAERS Safety Report 12208547 (Version 2)
Quarter: 2016Q1

REPORT INFORMATION
  Report Type: Spontaneous
  Country: DE (occurrence: DE)
  Receive Date: 20160324
  Receipt Date: 20160329
  Transmission Date: 20160526
  Serious: Yes (Congenital Anomaly, Other)
  Sender: FDA-Public Use
  Company Number: GXKR2016DE001523

PATIENT

DRUGS (5)
  1. FLUANXOL//FLUPENTIXOL DIHYDROCHLORIDE [Suspect]
     Active Substance: FLUPENTIXOL
     Indication: ACUTE PSYCHOSIS
     Dosage: 2 MG, BID
     Route: 064
     Dates: start: 20150220, end: 20150720
  2. CLOZAPINE. [Suspect]
     Active Substance: CLOZAPINE
     Indication: ACUTE PSYCHOSIS
     Dosage: 75 [MG/D ]
     Route: 064
     Dates: start: 20150721, end: 20151004
  3. FOLSAEURE [Concomitant]
     Active Substance: FOLIC ACID
     Indication: PROPHYLAXIS OF NEURAL TUBE DEFECT
     Dosage: UNK UKN, UNK
     Route: 064
     Dates: start: 20150413, end: 20151004
  4. SERTRALINE [Suspect]
     Active Substance: SERTRALINE HYDROCHLORIDE
     Indication: ACUTE PSYCHOSIS
     Dosage: 100 [MG/D ]
     Route: 064
     Dates: start: 20150220, end: 20151004
  5. ATOSIL [Suspect]
     Active Substance: PROMETHAZINE HYDROCHLORIDE
     Indication: ACUTE PSYCHOSIS
     Dosage: UNK UKN, UNK
     Route: 064
     Dates: start: 20150116, end: 20151004

REACTIONS (4)
  - Talipes [Unknown]
  - Respiratory disorder neonatal [Recovered/Resolved]
  - Pre-eclampsia [None]
  - Exposure during pregnancy [None]

NARRATIVE: CASE EVENT DATE: 20151004
